APPROVED DRUG PRODUCT: PERMETHRIN
Active Ingredient: PERMETHRIN
Strength: 1%
Dosage Form/Route: LOTION;TOPICAL
Application: A076090 | Product #001
Applicant: PERRIGO NEW YORK INC
Approved: Dec 20, 2001 | RLD: No | RS: No | Type: OTC